FAERS Safety Report 9652828 (Version 3)
Quarter: 2013Q4

REPORT INFORMATION
  Report Type: Spontaneous
  Country: FR (occurrence: FR)
  Receive Date: 20131029
  Receipt Date: 20131115
  Transmission Date: 20140711
  Serious: Yes (Death)
  Sender: FDA-Public Use
  Company Number: FR-TEVA-439559ISR

PATIENT
  Age: 17 Year
  Sex: Female

DRUGS (4)
  1. PARACETAMOL [Suspect]
  2. ERCEFURYL 200 MG [Suspect]
     Dosage: 4 GRAM DAILY; 20 TABLETS OF 200 MG
  3. OGASTRO 15 MG [Suspect]
     Dosage: 420 MILLIGRAM DAILY; 28 TABLETS OF 15 MG
  4. DEBRIDAT [Suspect]
     Dosage: 6 GRAM DAILY; 30 TABLETS OF 200 MG

REACTIONS (2)
  - Intentional overdose [Fatal]
  - Circulatory collapse [Fatal]
